FAERS Safety Report 8490984 (Version 4)
Quarter: 2012Q4

REPORT INFORMATION
  Report Type: 
  Country: US (occurrence: US)
  Receive Date: 20120403
  Receipt Date: 20121112
  Transmission Date: 20130627
  Serious: No
  Sender: FDA-Public Use
  Company Number: US-ELI_LILLY_AND_COMPANY-US201203008761

PATIENT
  Sex: Female
  Weight: 53.97 kg

DRUGS (4)
  1. FORTEO [Suspect]
     Indication: OSTEOPOROSIS
     Dosage: 20 ug, qd
     Dates: start: 201202
  2. FORTEO [Suspect]
     Dosage: 20 ug, qd
  3. FORTEO [Suspect]
     Dosage: 20 ug, qd
  4. CALCIUM [Concomitant]

REACTIONS (18)
  - Arthropathy [Unknown]
  - Bursitis [Unknown]
  - Muscle spasms [Not Recovered/Not Resolved]
  - Gastrooesophageal reflux disease [Not Recovered/Not Resolved]
  - Dysphagia [Not Recovered/Not Resolved]
  - Hiatus hernia [Not Recovered/Not Resolved]
  - Chest discomfort [Unknown]
  - Nausea [Unknown]
  - Chest discomfort [Unknown]
  - Dizziness [Unknown]
  - Insomnia [Unknown]
  - Depressed mood [Unknown]
  - Vertigo [Recovered/Resolved]
  - Lethargy [Unknown]
  - Feeling abnormal [Unknown]
  - Gait disturbance [Unknown]
  - Balance disorder [Unknown]
  - Drug dose omission [Unknown]
